FAERS Safety Report 13365435 (Version 1)
Quarter: 2017Q1

REPORT INFORMATION
  Report Type: Spontaneous
  Country: SI (occurrence: SI)
  Receive Date: 20170323
  Receipt Date: 20170323
  Transmission Date: 20170429
  Serious: Yes (Other)
  Sender: FDA-Public Use
  Company Number: SI-JNJFOC-20170322216

PATIENT
  Age: 85 Year
  Sex: Female

DRUGS (2)
  1. NEBIVOLOL. [Suspect]
     Active Substance: NEBIVOLOL
     Indication: PRODUCT USED FOR UNKNOWN INDICATION
     Route: 048
  2. XARELTO [Suspect]
     Active Substance: RIVAROXABAN
     Indication: ATRIAL FIBRILLATION
     Route: 048

REACTIONS (7)
  - Dehydration [Unknown]
  - Musculoskeletal chest pain [Unknown]
  - Extravasation [Unknown]
  - Chest pain [Unknown]
  - Blood pressure increased [Unknown]
  - Renal impairment [Unknown]
  - Loss of consciousness [Unknown]
